FAERS Safety Report 8053662-4 (Version None)
Quarter: 2012Q1

REPORT INFORMATION
  Report Type: 
  Country: None (occurrence: None)
  Receive Date: 20120118
  Receipt Date: 20120117
  Transmission Date: 20120608
  Serious: Yes (Other)
  Sender: FDA-Public Use
  Company Number: US-PFIZER INC-2012013567

PATIENT
  Sex: Female
  Weight: 84 kg

DRUGS (5)
  1. CHANTIX [Suspect]
     Dosage: 0.5 MG, 1X/DAY
     Route: 048
     Dates: start: 20111201
  2. SPIRIVA [Concomitant]
     Dosage: UNK
  3. CHANTIX [Suspect]
     Dosage: UNK
     Route: 048
  4. FUROSEMIDE [Concomitant]
     Dosage: UNK
  5. IBUPROFEN (ADVIL) [Concomitant]
     Dosage: UNK

REACTIONS (4)
  - ASTHENIA [None]
  - DRUG INEFFECTIVE [None]
  - DEPRESSION [None]
  - HYPERSOMNIA [None]
